FAERS Safety Report 7704446-5 (Version None)
Quarter: 2011Q3

REPORT INFORMATION
  Report Type: 
  Country: None (occurrence: None)
  Receive Date: 20110823
  Receipt Date: 20110808
  Transmission Date: 20111222
  Serious: Yes (Death)
  Sender: FDA-Public Use
  Company Number: US-WATSON-2011-12445

PATIENT
  Sex: Male

DRUGS (1)
  1. FENTANYL-75 [Suspect]
     Indication: PAIN MANAGEMENT
     Dosage: 75 MCG PER HOUR
     Route: 062
     Dates: start: 20090526, end: 20090527

REACTIONS (2)
  - TOXICITY TO VARIOUS AGENTS [None]
  - ACCIDENTAL DEATH [None]
